FAERS Safety Report 5753483-9 (Version None)
Quarter: 2008Q2

REPORT INFORMATION
  Report Type: 
  Country: None (occurrence: None)
  Receive Date: 20080530
  Receipt Date: 20080109
  Transmission Date: 20081010
  Serious: No
  Sender: FDA-Public Use
  Company Number: US-AMGEN-US259969

PATIENT
  Sex: Female

DRUGS (18)
  1. VECTIBIX [Suspect]
     Indication: COLORECTAL CANCER
     Route: 065
     Dates: start: 20080109
  2. CYMBALTA [Concomitant]
     Route: 065
  3. NEURONTIN [Concomitant]
     Route: 065
  4. AMBIEN [Concomitant]
     Route: 065
  5. ATIVAN [Concomitant]
     Route: 065
  6. PHENERGAN [Concomitant]
  7. OXYCONTIN [Concomitant]
     Route: 065
  8. LORCET-HD [Concomitant]
     Route: 065
  9. MOBIC [Concomitant]
     Route: 065
  10. ASPIRIN [Concomitant]
     Route: 065
  11. ACULAR [Concomitant]
     Route: 065
  12. XELODA [Concomitant]
     Route: 065
     Dates: end: 20070101
  13. XANAX [Concomitant]
     Route: 065
  14. VITAMIN E [Concomitant]
     Route: 065
  15. VITAMIN CAP [Concomitant]
  16. ASCORBIC ACID [Concomitant]
     Route: 065
  17. CALCIUM [Concomitant]
     Route: 065
     Dates: end: 20070101
  18. OXALIPLATIN [Concomitant]
     Route: 065

REACTIONS (8)
  - ASTHENIA [None]
  - CHEST PAIN [None]
  - FATIGUE [None]
  - INJECTION SITE NODULE [None]
  - PAIN [None]
  - PRURITUS [None]
  - RHINORRHOEA [None]
  - SNEEZING [None]
